FAERS Safety Report 6040096-7 (Version None)
Quarter: 2009Q1

REPORT INFORMATION
  Report Type: 
  Country: None (occurrence: None)
  Receive Date: 20090116
  Receipt Date: 20080125
  Transmission Date: 20090719
  Serious: Yes (Hospitalization)
  Sender: FDA-Public Use
  Company Number: US-BRISTOL-MYERS SQUIBB COMPANY-14011555

PATIENT
  Age: 32 Year
  Sex: Female

DRUGS (5)
  1. ABILIFY [Suspect]
     Indication: SCHIZOPHRENIA
     Route: 048
  2. WELLBUTRIN XL [Concomitant]
  3. ALPRAZOLAM [Concomitant]
     Dosage: 1 DOSAGE FORM = 0.5, UNIT UNSPECIFIED
  4. PROTONIX [Concomitant]
     Dosage: 1 DOSAGE FORM= 40, UNITS UNSPECIFIED
  5. CLONIDINE [Concomitant]
     Dosage: 1 DOSAGE FORM = 0.1 (UNIT NOT SPECIFIED)

REACTIONS (1)
  - NEUROLEPTIC MALIGNANT SYNDROME [None]
